FAERS Safety Report 9648820 (Version 1)
Quarter: 2013Q4

REPORT INFORMATION
  Report Type: Spontaneous
  Country: CN (occurrence: CN)
  Receive Date: 20131028
  Receipt Date: 20131028
  Transmission Date: 20140711
  Serious: Yes (Hospitalization)
  Sender: FDA-Public Use
  Company Number: CN-ROCHE-1291834

PATIENT
  Age: 3 Year
  Sex: Female

DRUGS (6)
  1. CEFTRIAXONE SODIUM [Suspect]
     Indication: COUGH
     Route: 041
  2. CEFTRIAXONE SODIUM [Suspect]
     Indication: ASTHMA
  3. AZITHROMYCIN [Suspect]
     Indication: COUGH
     Route: 041
  4. AZITHROMYCIN [Suspect]
     Indication: PYREXIA
  5. AMOXICILLIN [Suspect]
     Indication: COUGH
     Route: 048
  6. AMOXICILLIN [Suspect]
     Indication: PYREXIA

REACTIONS (5)
  - Pyrexia [Recovered/Resolved]
  - Marasmus [Recovered/Resolved]
  - Diarrhoea [Recovered/Resolved]
  - Candida infection [Recovered/Resolved]
  - Rash erythematous [Recovered/Resolved]
